FAERS Safety Report 7651536-1 (Version None)
Quarter: 2011Q3

REPORT INFORMATION
  Report Type: 
  Country: None (occurrence: None)
  Receive Date: 20110802
  Receipt Date: 20110802
  Transmission Date: 20111222
  Serious: Yes (Death, Life-Threatening, Hospitalization, Other)
  Sender: FDA-Public Use
  Company Number: PHHO2009US05745

PATIENT
  Sex: Female
  Weight: 65.9 kg

DRUGS (15)
  1. XANAX [Concomitant]
  2. SEROQUEL [Concomitant]
  3. EFFEXOR [Concomitant]
  4. EXELON [Suspect]
     Indication: DEMENTIA ALZHEIMER'S TYPE
     Dosage: CODE NOT BROKEN
     Route: 062
     Dates: start: 20071106
  5. COREG [Concomitant]
  6. LISINOPRIL [Concomitant]
  7. LASIX [Concomitant]
  8. RISPERDAL [Concomitant]
  9. FLUOXETINE [Concomitant]
  10. NO TREATMENT RECEIVED [Suspect]
     Indication: DEMENTIA ALZHEIMER'S TYPE
     Dosage: NO TREATMENT
     Route: 062
  11. POTASSIUM [Concomitant]
  12. PROZAC [Concomitant]
  13. REQUIP [Concomitant]
  14. POTASSIUM CHLORIDE [Concomitant]
  15. RISPERIDONE [Concomitant]

REACTIONS (27)
  - DEMENTIA ALZHEIMER'S TYPE [None]
  - MOBILITY DECREASED [None]
  - ARTERIOSCLEROSIS [None]
  - CORONARY ARTERY DISEASE [None]
  - UNRESPONSIVE TO STIMULI [None]
  - INTERVERTEBRAL DISC DISORDER [None]
  - TACHYPNOEA [None]
  - RENAL CYST [None]
  - DIVERTICULITIS [None]
  - BUNDLE BRANCH BLOCK LEFT [None]
  - AORTIC CALCIFICATION [None]
  - HIATUS HERNIA [None]
  - HYPERKALAEMIA [None]
  - DYSPNOEA [None]
  - DIARRHOEA [None]
  - ADRENAL ADENOMA [None]
  - PYREXIA [None]
  - ELECTROCARDIOGRAM T WAVE AMPLITUDE DECREASED [None]
  - SPINAL OSTEOARTHRITIS [None]
  - DISORIENTATION [None]
  - ABDOMINAL DISTENSION [None]
  - CARDIOMEGALY [None]
  - CONSTIPATION [None]
  - HYPOPHAGIA [None]
  - RENAL FAILURE ACUTE [None]
  - COGNITIVE DISORDER [None]
  - CHEST PAIN [None]
